FAERS Safety Report 7645493-1 (Version None)
Quarter: 2011Q3

REPORT INFORMATION
  Report Type: 
  Country: None (occurrence: None)
  Receive Date: 20110729
  Receipt Date: 20110722
  Transmission Date: 20111222
  Serious: Yes (Death, Hospitalization, Other)
  Sender: FDA-Public Use
  Company Number: US-AMGEN-US376097

PATIENT
  Age: 84 Year
  Sex: Female

DRUGS (11)
  1. DESVENLAFAXINE [Concomitant]
  2. ASCORBIC ACID [Concomitant]
  3. MULTI-VITAMINS [Concomitant]
  4. IMMUNOGLOBULINS [Concomitant]
     Dosage: UNK UNK, UNK
     Route: 042
  5. AMINOCAPROIC ACID [Concomitant]
  6. ACTONEL [Concomitant]
  7. NPLATE [Suspect]
     Dates: start: 20090529, end: 20090626
  8. NPLATE [Suspect]
     Indication: IDIOPATHIC THROMBOCYTOPENIC PURPURA
     Dosage: 3 A?G/KG, UNK
     Dates: start: 20090529, end: 20090629
  9. ELTROMBOPAG [Concomitant]
  10. ATENOLOL [Concomitant]
     Dosage: 25 MG, UNK
  11. OSCAL [Concomitant]

REACTIONS (4)
  - DRUG INEFFECTIVE [None]
  - MYELODYSPLASTIC SYNDROME [None]
  - THROMBOCYTOPENIA [None]
  - GASTROINTESTINAL HAEMORRHAGE [None]
